FAERS Safety Report 9443498 (Version 2)
Quarter: 2013Q4

REPORT INFORMATION
  Report Type: Report from Study
  Country: US (occurrence: US)
  Receive Date: 20130806
  Receipt Date: 20131016
  Transmission Date: 20140711
  Serious: Yes (Hospitalization)
  Sender: FDA-Public Use
  Company Number: US-VERTEX PHARMACEUTICALS INC.-2012-025255

PATIENT
  Age: 57 Year
  Sex: Male
  Weight: 95.4 kg

DRUGS (7)
  1. VX-950 (TELAPREVIR) [Suspect]
     Indication: HEPATITIS C
     Dosage: UNK
     Dates: start: 20120913, end: 20121115
  2. Z-PEGYLATED INTERFERON-2A [Suspect]
     Indication: HEPATITIS C
     Dosage: UNK
     Dates: start: 20120913, end: 20121115
  3. Z-RIBAVIRIN [Suspect]
     Indication: HEPATITIS C
     Dosage: UNK
     Dates: start: 20120913, end: 20121115
  4. PREDNISONE [Concomitant]
     Indication: RASH
     Dosage: 40 MG, UNK
     Dates: start: 20121127, end: 20130110
  5. HYDROCODONE [Concomitant]
     Indication: DYSPHAGIA
     Dosage: 2 DF, UNK
     Dates: start: 20121115, end: 20121124
  6. LOVENOX [Concomitant]
     Indication: THROMBOSIS
     Dosage: 80 MG, UNK
     Dates: start: 20121124, end: 20130110
  7. COUMADINE [Concomitant]
     Indication: THROMBOSIS
     Dosage: 5 MG, UNK
     Dates: start: 20121124, end: 20130110

REACTIONS (2)
  - Skin lesion [Recovered/Resolved]
  - Pulmonary embolism [Recovered/Resolved]
